FAERS Safety Report 4612259-6 (Version None)
Quarter: 2005Q2

REPORT INFORMATION
  Report Type: 
  Country: None (occurrence: None)
  Receive Date: 20050308
  Receipt Date: 20041119
  Transmission Date: 20051028
  Serious: Yes (Other)
  Sender: FDA-Public Use
  Company Number: 2004UW23801

PATIENT
  Age: 76 Year
  Sex: Female
  Weight: 62.142 kg

DRUGS (5)
  1. CRESTOR [Suspect]
     Indication: BLOOD CHOLESTEROL INCREASED
     Dosage: 10 MG QD PO
     Route: 048
  2. CRESTOR [Suspect]
     Indication: BLOOD CHOLESTEROL INCREASED
     Dosage: 10 MG QD PO
     Route: 048
  3. PRINZIDE [Concomitant]
  4. SYNTHROID [Concomitant]
  5. PLAVIX [Concomitant]

REACTIONS (2)
  - CONSTIPATION [None]
  - POLLAKIURIA [None]
